FAERS Safety Report 6197793-2 (Version None)
Quarter: 2009Q2

REPORT INFORMATION
  Report Type: 
  Country: None (occurrence: None)
  Receive Date: 20090521
  Receipt Date: 20090510
  Transmission Date: 20091009
  Serious: Yes (Hospitalization, Other)
  Sender: FDA-Public Use
  Company Number: HN-PFIZER INC-2009212055

PATIENT
  Age: 42 Year

DRUGS (4)
  1. CADUET [Suspect]
     Indication: HYPERTENSION
     Dosage: FREQUENCY: 1XDAY,
     Route: 048
     Dates: start: 20090101
  2. CADUET [Suspect]
     Indication: DYSLIPIDAEMIA
  3. ATACAND [Concomitant]
  4. HYDROCHLOROTHIAZIDE [Concomitant]

REACTIONS (6)
  - ABDOMINAL PAIN [None]
  - DISCOMFORT [None]
  - JAUNDICE [None]
  - PAIN [None]
  - PURULENT DISCHARGE [None]
  - PYREXIA [None]
